FAERS Safety Report 10044544 (Version 1)
Quarter: 2014Q1

REPORT INFORMATION
  Report Type: Spontaneous
  Country: US (occurrence: US)
  Receive Date: 20140328
  Receipt Date: 20140328
  Transmission Date: 20141002
  Serious: No
  Sender: FDA-Public Use
  Company Number: US-PFIZER INC-2014086328

PATIENT
  Age: 55 Year
  Sex: Female
  Weight: 89.3 kg

DRUGS (5)
  1. LYRICA [Suspect]
     Indication: FIBROMYALGIA
     Dosage: UNK
     Dates: end: 2014
  2. MAXZIDE [Concomitant]
     Indication: HYPERTENSION
     Dosage: 32.5 MG, 1X/DAY
  3. BENAZEPRIL [Concomitant]
     Indication: HYPERTENSION
     Dosage: 40 MG, 1X/DAY
  4. VERAPAMIL [Concomitant]
     Indication: ATRIAL FIBRILLATION
     Dosage: 120 MG, 1X/DAY
  5. CELEBREX [Concomitant]
     Indication: OSTEOARTHRITIS
     Dosage: 200 MG, 1X/DAY
     Dates: start: 201401

REACTIONS (1)
  - Fibromyalgia [Unknown]
